FAERS Safety Report 22077738 (Version 3)
Quarter: 2023Q2

REPORT INFORMATION
  Report Type: Spontaneous
  Country: US (occurrence: US)
  Receive Date: 20230309
  Receipt Date: 20230414
  Transmission Date: 20230722
  Serious: No
  Sender: FDA-Public Use
  Company Number: US-JNJFOC-20230317377

PATIENT
  Sex: Male

DRUGS (4)
  1. RISPERDAL [Suspect]
     Active Substance: RISPERIDONE
     Indication: Autism spectrum disorder
     Dosage: 1 MG/ML
     Route: 048
  2. RISPERDAL [Suspect]
     Active Substance: RISPERIDONE
     Indication: Encephalopathy
  3. RISPERDAL [Suspect]
     Active Substance: RISPERIDONE
     Indication: Acquired epileptic aphasia
  4. RISPERDAL [Suspect]
     Active Substance: RISPERIDONE
     Indication: Sleep disorder

REACTIONS (1)
  - Drug ineffective [Unknown]
